FAERS Safety Report 5328893-4 (Version None)
Quarter: 2007Q2

REPORT INFORMATION
  Report Type: 
  Country: None (occurrence: None)
  Receive Date: 20070518
  Receipt Date: 20070503
  Transmission Date: 20071010
  Serious: Yes (Other)
  Sender: FDA-Public Use
  Company Number: US-BRISTOL-MYERS SQUIBB COMPANY-13777164

PATIENT
  Age: 25 Year
  Sex: Female

DRUGS (5)
  1. REYATAZ [Suspect]
     Route: 048
     Dates: start: 20070326
  2. ATRIPLA [Suspect]
     Route: 048
     Dates: end: 20070319
  3. NORVIR [Suspect]
     Route: 048
     Dates: start: 20070326
  4. TRUVADA [Suspect]
     Route: 048
     Dates: start: 20070319
  5. VIRAMUNE [Suspect]
     Route: 048
     Dates: start: 20070319, end: 20070326

REACTIONS (2)
  - ABORTION SPONTANEOUS [None]
  - PREGNANCY [None]
